FAERS Safety Report 6371850-X (Version None)
Quarter: 2009Q3

REPORT INFORMATION
  Report Type: 
  Country: None (occurrence: None)
  Receive Date: 20090923
  Receipt Date: 20090914
  Transmission Date: 20100115
  Serious: Yes (Hospitalization, Other)
  Sender: FDA-Public Use
  Company Number: PHHY2009IE32132

PATIENT
  Sex: Female

DRUGS (2)
  1. CLOZARIL [Suspect]
     Indication: SCHIZOPHRENIA
     Dosage: 600 MG/DAY
     Route: 048
     Dates: start: 20021115
  2. CLOZARIL [Suspect]
     Dosage: 400MG
     Route: 048

REACTIONS (10)
  - ANTIPSYCHOTIC DRUG LEVEL INCREASED [None]
  - BREAST MASS [None]
  - LUNG NEOPLASM MALIGNANT [None]
  - MALAISE [None]
  - NEUTROPHIL COUNT DECREASED [None]
  - PNEUMONIA [None]
  - SOMNOLENCE [None]
  - VOMITING [None]
  - WEIGHT DECREASED [None]
  - WHITE BLOOD CELL COUNT DECREASED [None]
